FAERS Safety Report 18966568 (Version 1)
Quarter: 2021Q1

REPORT INFORMATION
  Report Type: Other
  Country: IN (occurrence: IN)
  Receive Date: 20210304
  Receipt Date: 20210304
  Transmission Date: 20210420
  Serious: Yes (Hospitalization, Other)
  Sender: FDA-Public Use
  Company Number: IN-APPCO PHARMA LLC-2107568

PATIENT
  Age: 73 Year
  Sex: Male

DRUGS (1)
  1. METRONIDAZOLE. [Suspect]
     Active Substance: METRONIDAZOLE
     Indication: LIVER ABSCESS
     Route: 065

REACTIONS (2)
  - Nervous system disorder [Recovered/Resolved]
  - Neurotoxicity [Recovered/Resolved]
